FAERS Safety Report 4337351-5 (Version None)
Quarter: 2004Q2

REPORT INFORMATION
  Report Type: 
  Country: None (occurrence: None)
  Receive Date: 20040407
  Receipt Date: 20040318
  Transmission Date: 20050107
  Serious: Yes (Other)
  Sender: FDA-Public Use
  Company Number: CA_040306769

PATIENT
  Sex: Female

DRUGS (3)
  1. HUMALOG [Suspect]
     Indication: DIABETES MELLITUS
  2. HUMULIN N [Suspect]
     Indication: DIABETES MELLITUS
  3. CORTISONE [Concomitant]

REACTIONS (4)
  - BLOOD GLUCOSE INCREASED [None]
  - DEVICE FAILURE [None]
  - DIABETES MELLITUS INADEQUATE CONTROL [None]
  - PHARMACEUTICAL PRODUCT COMPLAINT [None]
